FAERS Safety Report 19517343 (Version 1)
Quarter: 2021Q3

REPORT INFORMATION
  Report Type: Spontaneous
  Country: BR (occurrence: BR)
  Receive Date: 20210712
  Receipt Date: 20210712
  Transmission Date: 20211014
  Serious: Yes (Other)
  Sender: FDA-Public Use
  Company Number: BR-AMGEN-BRASP2019084813

PATIENT
  Age: 62 Year
  Sex: Male

DRUGS (1)
  1. ENBREL [Suspect]
     Active Substance: ETANERCEPT
     Indication: PRODUCT USED FOR UNKNOWN INDICATION
     Dosage: UNK
     Route: 065
     Dates: start: 2012, end: 2020

REACTIONS (8)
  - Dysstasia [Unknown]
  - Lung neoplasm [Unknown]
  - Gait disturbance [Unknown]
  - Pain [Unknown]
  - Sneezing [Unknown]
  - Back pain [Unknown]
  - Gastrointestinal neoplasm [Unknown]
  - Adenocarcinoma [Unknown]
